FAERS Safety Report 25934675 (Version 2)
Quarter: 2025Q4

REPORT INFORMATION
  Report Type: Report from Study
  Country: EU (occurrence: EU)
  Receive Date: 20251017
  Receipt Date: 20251114
  Transmission Date: 20260117
  Serious: Yes (Other)
  Sender: ABBVIE
  Company Number: EU-ABBVIE-6501899

PATIENT
  Age: 73 Year
  Sex: Female
  Weight: 50 kg

DRUGS (26)
  1. FOSCARBIDOPA\FOSLEVODOPA [Suspect]
     Active Substance: FOSCARBIDOPA\FOSLEVODOPA
     Indication: Parkinson^s disease
     Dosage: DURATION OF THE DAILY INFUSION: 24 HOURS?SPECIFY FLOW RATE: 0.2 ML/H?DAILY DOSE IS 4.80
     Route: 058
     Dates: start: 20250429, end: 20250429
  2. FOSCARBIDOPA\FOSLEVODOPA [Suspect]
     Active Substance: FOSCARBIDOPA\FOSLEVODOPA
     Dosage: THERAPEUTIC ADJUSTMENT.?SPECIFY FLOW RATE: 0.24 ML/H, ?24-HOUR INFUSION, ?DAILY DOSE: 5.76. ?BOLU...
     Route: 058
     Dates: start: 20250429, end: 20250507
  3. FOSCARBIDOPA\FOSLEVODOPA [Suspect]
     Active Substance: FOSCARBIDOPA\FOSLEVODOPA
     Dosage: THERAPEUTIC ADJUSTMENT?DURATION OF THE DAILY INFUSION IS 24 HOURS,?BASIC FLOW OF 0.35 ML/H, ?LOW ...
     Route: 058
     Dates: start: 20250516, end: 20250701
  4. FOSCARBIDOPA\FOSLEVODOPA [Suspect]
     Active Substance: FOSCARBIDOPA\FOSLEVODOPA
     Dosage: THERAPEUTIC ADJUSTMENT?DURATION OF THE DAILY INFUSION IS 24 HOURS, ?FLOW RATE IS 0.42 ML/H, ?DAIL...
     Route: 058
     Dates: start: 20250701
  5. FOSCARBIDOPA\FOSLEVODOPA [Suspect]
     Active Substance: FOSCARBIDOPA\FOSLEVODOPA
     Dosage: THERAPEUTIC ADJUSTMENT?DURATION OF THE DAILY INFUSION IS 24 HOURS, ?BASIC FLOW 0.35 ML/H-MORNING,...
     Route: 058
     Dates: start: 20251009
  6. FOSCARBIDOPA\FOSLEVODOPA [Suspect]
     Active Substance: FOSCARBIDOPA\FOSLEVODOPA
     Dosage: THERAPEUTIC ADJUSTMENT?BASIC FLOW MULTIPLE DOSES OF 0.24 ML/H IN MORNING, AFTERNOON, AND EVENING....
     Route: 058
     Dates: start: 20250507, end: 20250516
  7. BENSERAZIDE\LEVODOPA [Concomitant]
     Active Substance: BENSERAZIDE\LEVODOPA
     Indication: Parkinson^s disease
     Dosage: INTERMITTENT TREATMENT
     Dates: start: 20230921, end: 20250428
  8. AZILECT [Concomitant]
     Active Substance: RASAGILINE MESYLATE
     Indication: Parkinson^s disease
     Dosage: INTERMITTENT TREATMENT
     Dates: start: 20210503, end: 20250428
  9. BENSERAZIDE\LEVODOPA [Concomitant]
     Active Substance: BENSERAZIDE\LEVODOPA
     Indication: Parkinson^s disease
     Dosage: INTERMITTENT TREATMENT
     Dates: start: 20241217, end: 20250428
  10. BENSERAZIDE\LEVODOPA [Concomitant]
     Active Substance: BENSERAZIDE\LEVODOPA
     Indication: Parkinson^s disease
     Dosage: INTERMITTENT TREATMENT
     Dates: start: 20240920, end: 20250428
  11. BENSERAZIDE\LEVODOPA [Concomitant]
     Active Substance: BENSERAZIDE\LEVODOPA
     Indication: Parkinson^s disease
     Dosage: INTERMITTENT TREATMENT
     Dates: start: 20250517, end: 20250518
  12. BENSERAZIDE\LEVODOPA [Concomitant]
     Active Substance: BENSERAZIDE\LEVODOPA
     Indication: Parkinson^s disease
     Dosage: INTERMITTENT TREATMENT
     Dates: start: 20250519, end: 20250519
  13. BENSERAZIDE\LEVODOPA [Concomitant]
     Active Substance: BENSERAZIDE\LEVODOPA
     Indication: Parkinson^s disease
     Dosage: INTERMITTENT TREATMENT
     Dates: start: 20250520, end: 20250520
  14. BENSERAZIDE\LEVODOPA [Concomitant]
     Active Substance: BENSERAZIDE\LEVODOPA
     Indication: Parkinson^s disease
     Dosage: INTERMITTENT TREATMENT?125 MG DISPERSIBLE
     Dates: start: 20250702
  15. ATORVASTATIN [Concomitant]
     Active Substance: ATORVASTATIN
     Indication: Product used for unknown indication
  16. DOMPERIDONE [Concomitant]
     Active Substance: DOMPERIDONE
     Indication: Product used for unknown indication
  17. NEBIVOLOL [Concomitant]
     Active Substance: NEBIVOLOL
     Indication: Product used for unknown indication
  18. CHOLECALCIFEROL [Concomitant]
     Active Substance: CHOLECALCIFEROL
     Indication: Product used for unknown indication
  19. ALBUTEROL [Concomitant]
     Active Substance: ALBUTEROL
     Indication: Product used for unknown indication
  20. TIOTROPIUM [Concomitant]
     Active Substance: TIOTROPIUM
     Indication: Product used for unknown indication
  21. INNOVAIR [Concomitant]
     Active Substance: BECLOMETHASONE DIPROPIONATE\FORMOTEROL
     Indication: Product used for unknown indication
  22. BROMAZEPAM [Concomitant]
     Active Substance: BROMAZEPAM
     Indication: Product used for unknown indication
  23. RACECADOTRIL [Concomitant]
     Active Substance: RACECADOTRIL
     Indication: Product used for unknown indication
  24. BETAMETHASONE DIPROPIONATE\BETAMETHASONE SODIUM PHOSPHATE [Concomitant]
     Active Substance: BETAMETHASONE DIPROPIONATE\BETAMETHASONE SODIUM PHOSPHATE
     Indication: Product used for unknown indication
  25. SPAGULAX [Concomitant]
     Active Substance: HERBALS\PLANTAGO OVATA SEED
     Indication: Product used for unknown indication
     Dosage: TIME INTERVAL: AS NECESSARY
  26. GABAPENTIN [Concomitant]
     Active Substance: GABAPENTIN
     Indication: Product used for unknown indication

REACTIONS (2)
  - Skin mass [Not Recovered/Not Resolved]
  - Inflammation [Not Recovered/Not Resolved]

NARRATIVE: CASE EVENT DATE: 20250911
